FAERS Safety Report 10429737 (Version 1)
Quarter: 2014Q3

REPORT INFORMATION
  Report Type: Spontaneous
  Country: JP (occurrence: None)
  Receive Date: 20140801
  Receipt Date: 20140801
  Transmission Date: 20150326
  Serious: Yes (Other)
  Sender: FDA-Public Use
  Company Number: 2014-10223

PATIENT
  Age: 84 Year
  Sex: Male

DRUGS (3)
  1. AVOLVE (DUTASTERIDE) [Suspect]
     Active Substance: DUTASTERIDE
     Indication: BENIGN PROSTATIC HYPERPLASIA
     Route: 048
     Dates: start: 20131105, end: 20140425
  2. BLADDERON [Suspect]
     Active Substance: FLAVOXATE
     Indication: POLLAKIURIA
     Route: 048
     Dates: start: 20131105, end: 20140425
  3. RAPAFLO [Suspect]
     Active Substance: SILODOSIN
     Indication: DYSURIA
     Route: 048
     Dates: start: 20131105, end: 20140425

REACTIONS (2)
  - Drug-induced liver injury [None]
  - Blood creatine phosphokinase increased [None]

NARRATIVE: CASE EVENT DATE: 20140425
